FAERS Safety Report 5173158-7 (Version None)
Quarter: 2006Q4

REPORT INFORMATION
  Report Type: 
  Country: None (occurrence: None)
  Receive Date: 20061207
  Receipt Date: 20061207
  Transmission Date: 20070319
  Serious: Yes (Hospitalization)
  Sender: FDA-Public Use
  Company Number: None

PATIENT
  Age: 65 Year
  Sex: Female
  Weight: 52.1637 kg

DRUGS (11)
  1. REMODULIN [Suspect]
     Indication: PULMONARY HYPERTENSION
     Dosage: 50 NG/KG/MIN CONTINUOUS IV
     Route: 042
     Dates: start: 20060501
  2. CALCIUM [Concomitant]
  3. COUMADIN [Concomitant]
  4. FOLIC ACID [Concomitant]
  5. FOSAMAX [Concomitant]
  6. PLAQUENIL [Concomitant]
  7. PREDNISONE TAB [Concomitant]
  8. TRAMADOL HCL [Concomitant]
  9. PREVACID [Concomitant]
  10. VITAMIN D [Concomitant]
  11. MIACALCIN [Concomitant]

REACTIONS (8)
  - BACTERAEMIA [None]
  - CENTRAL LINE INFECTION [None]
  - DIARRHOEA [None]
  - ENTEROBACTER INFECTION [None]
  - HERPES ZOSTER [None]
  - THERAPY NON-RESPONDER [None]
  - TREMOR [None]
  - URINARY TRACT INFECTION [None]
